FAERS Safety Report 19821460 (Version 1)
Quarter: 2021Q3

REPORT INFORMATION
  Report Type: Spontaneous
  Country: CA (occurrence: CA)
  Receive Date: 20210913
  Receipt Date: 20210913
  Transmission Date: 20211014
  Serious: Yes (Death, Other)
  Sender: FDA-Public Use
  Company Number: CA-ACCORD-238358

PATIENT
  Sex: Female

DRUGS (6)
  1. QUETIAPINE. [Suspect]
     Active Substance: QUETIAPINE
     Dosage: 1 EVERY 1 DAYS
     Route: 048
  2. ATOMOXETINE/ATOMOXETINE HYDROCHLORIDE [Concomitant]
     Active Substance: ATOMOXETINE HYDROCHLORIDE
  3. ISONIAZID. [Concomitant]
     Active Substance: ISONIAZID
  4. PARACETAMOL [Suspect]
     Active Substance: ACETAMINOPHEN
     Route: 048
  5. ASPIRIN. [Suspect]
     Active Substance: ASPIRIN
     Route: 065
  6. CITALOPRAM [Concomitant]
     Active Substance: CITALOPRAM HYDROBROMIDE

REACTIONS (22)
  - Multiple organ dysfunction syndrome [Fatal]
  - Liver injury [Fatal]
  - Myalgia [Fatal]
  - Overdose [Fatal]
  - Seizure [Fatal]
  - Toxicity to various agents [Fatal]
  - Nausea [Fatal]
  - Oedema peripheral [Fatal]
  - Pericardial effusion [Fatal]
  - Cardiac arrest [Fatal]
  - Congestive hepatopathy [Fatal]
  - Myocarditis [Fatal]
  - Pleural effusion [Fatal]
  - Encephalopathy [Fatal]
  - Completed suicide [Fatal]
  - Hepatitis [Fatal]
  - Oxygen saturation decreased [Fatal]
  - Treatment noncompliance [Fatal]
  - Agitation [Fatal]
  - Cardiac failure [Fatal]
  - Face oedema [Fatal]
  - Hepatic failure [Fatal]
